FAERS Safety Report 26153707 (Version 1)
Quarter: 2025Q4

REPORT INFORMATION
  Report Type: Spontaneous
  Country: CA (occurrence: CA)
  Receive Date: 20251214
  Receipt Date: 20251214
  Transmission Date: 20260118
  Serious: Yes (Hospitalization)
  Sender: JOHNSON AND JOHNSON
  Company Number: CA-BAYER-2025A162938

PATIENT

DRUGS (3)
  1. RIVAROXABAN [Suspect]
     Active Substance: RIVAROXABAN
     Indication: Product used for unknown indication
     Route: 048
  2. INSULIN HUMAN [Suspect]
     Active Substance: INSULIN HUMAN
     Indication: Product used for unknown indication
  3. MORPHINE SULFATE [Suspect]
     Active Substance: MORPHINE SULFATE
     Indication: Product used for unknown indication

REACTIONS (1)
  - Drug dispensed to wrong patient [Unknown]
